FAERS Safety Report 11089799 (Version 1)
Quarter: 2015Q2

REPORT INFORMATION
  Report Type: Spontaneous
  Country: US (occurrence: None)
  Receive Date: 20150504
  Receipt Date: 20150504
  Transmission Date: 20150821
  Serious: Yes (Other)
  Sender: FDA-Public Use
  Company Number: None

PATIENT
  Age: 68 Year
  Sex: Male

DRUGS (3)
  1. REVLIMID [Suspect]
     Active Substance: LENALIDOMIDE
     Indication: PLASMA CELL MYELOMA
     Dosage: 10MG DAILY X 21D/28D ORAL
     Route: 048
     Dates: start: 20150223, end: 20150226
  2. ASPIRIN. [Concomitant]
     Active Substance: ASPIRIN
  3. TRIAMCINOLONE ACETATE [Concomitant]
     Active Substance: TRIAMCINOLONE ACETONIDE

REACTIONS (4)
  - Skin disorder [None]
  - Rash erythematous [None]
  - Pruritus generalised [None]
  - Rash papular [None]

NARRATIVE: CASE EVENT DATE: 20150225
